FAERS Safety Report 17102173 (Version 3)
Quarter: 2020Q2

REPORT INFORMATION
  Report Type: Report from Study
  Country: GB (occurrence: GB)
  Receive Date: 20191202
  Receipt Date: 20200424
  Transmission Date: 20200713
  Serious: Yes (Other)
  Sender: FDA-Public Use
  Company Number: GB-JNJFOC-20191134626

PATIENT
  Age: 49 Year
  Sex: Female
  Weight: 64.5 kg

DRUGS (3)
  1. USTEKINUMAB [Suspect]
     Active Substance: USTEKINUMAB
     Indication: CROHN^S DISEASE
     Dosage: (CONFLICTINGLY REPORTED REPORTED AS 390 MG)
     Route: 042
     Dates: start: 20191030
  2. AMGEVITA [Suspect]
     Active Substance: ADALIMUMAB
     Route: 065
  3. OCTASA [Concomitant]
     Active Substance: MESALAMINE

REACTIONS (9)
  - Erythema [Unknown]
  - Psoriasis [Unknown]
  - Muscular weakness [Unknown]
  - Abdominal pain lower [Recovered/Resolved]
  - Myocardial infarction [Unknown]
  - Hypertension [Unknown]
  - Panic attack [Unknown]
  - Vision blurred [Unknown]
  - Headache [Unknown]

NARRATIVE: CASE EVENT DATE: 2019
